FAERS Safety Report 9054649 (Version 3)
Quarter: 2014Q4

REPORT INFORMATION
  Report Type: Report from Study
  Country: US (occurrence: US)
  Receive Date: 20130131
  Receipt Date: 20141007
  Transmission Date: 20150529
  Serious: Yes (Hospitalization, Disabling, Other)
  Sender: FDA-Public Use
  Company Number: US-BRISTOL-MYERS SQUIBB COMPANY-16179939

PATIENT
  Age: 63 Year
  Sex: Female
  Weight: 67.7 kg

DRUGS (3)
  1. IPILIMUMAB [Suspect]
     Active Substance: IPILIMUMAB
     Indication: MALIGNANT MELANOMA
     Dosage: LAST DOSE-09SEP11.INTER-09SEP11 TOTAL DOSE:677 MG
     Route: 042
     Dates: start: 20110727, end: 20110909
  2. LOTEPREDNOL ETABONATE [Concomitant]
     Active Substance: LOTEPREDNOL ETABONATE
  3. DORZOLAMIDE HCL + TIMOLOL MALEATE [Concomitant]

REACTIONS (3)
  - Vomiting [Recovered/Resolved]
  - Hypophysitis [Recovering/Resolving]
  - Iritis [Recovered/Resolved]

NARRATIVE: CASE EVENT DATE: 20110920
